FAERS Safety Report 6752733-X (Version None)
Quarter: 2010Q2

REPORT INFORMATION
  Report Type: 
  Country: None (occurrence: None)
  Receive Date: 20100528
  Receipt Date: 20100422
  Transmission Date: 20101027
  Serious: Yes (Hospitalization)
  Sender: FDA-Public Use
  Company Number: 1-17293765

PATIENT
  Age: 58 Year
  Sex: Male

DRUGS (7)
  1. QUININE (MANUFACTURER UNKNOWN) [Suspect]
     Indication: MUSCLE SPASMS
     Dosage: ORAL
     Route: 048
     Dates: start: 20040313
  2. DIOVAN [Concomitant]
  3. DIOVAN HCT [Concomitant]
  4. ASPIRIN [Concomitant]
  5. PROPO-N/APAP (PROPOXYPHENE NAPSYLATE AND ACETAMINOPHEN) [Concomitant]
  6. TOPROL-XL [Concomitant]
  7. LIPITOR [Concomitant]

REACTIONS (16)
  - BODY TEMPERATURE INCREASED [None]
  - CHILLS [None]
  - CHOLELITHIASIS [None]
  - COUGH [None]
  - HEADACHE [None]
  - IDIOPATHIC THROMBOCYTOPENIC PURPURA [None]
  - INJURY [None]
  - LYMPHOMA [None]
  - LYMPHOPROLIFERATIVE DISORDER [None]
  - MOBILITY DECREASED [None]
  - MUSCULOSKELETAL PAIN [None]
  - MYELODYSPLASTIC SYNDROME [None]
  - PLATELET COUNT INCREASED [None]
  - PNEUMONIA [None]
  - PULMONARY EMBOLISM [None]
  - SYNCOPE [None]
